FAERS Safety Report 21743932 (Version 1)
Quarter: 2022Q4

REPORT INFORMATION
  Report Type: Spontaneous
  Country: BE (occurrence: None)
  Receive Date: 20221217
  Receipt Date: 20221217
  Transmission Date: 20230113
  Serious: Yes (Other)
  Sender: FDA-Public Use
  Company Number: BE-Merck Healthcare KGaA-9367111

PATIENT
  Sex: Female

DRUGS (9)
  1. MAVENCLAD [Suspect]
     Active Substance: CLADRIBINE
     Indication: Relapsing-remitting multiple sclerosis
     Dosage: YEAR ONE THERAPY
     Dates: start: 20200928, end: 20201106
  2. MAVENCLAD [Suspect]
     Active Substance: CLADRIBINE
     Dosage: YEAR TWO THERAPY
     Dates: start: 202110
  3. COVID-19 VACCINE [Concomitant]
     Indication: COVID-19 immunisation
  4. CHOLESFYTOL [Concomitant]
     Indication: Product used for unknown indication
  5. MAGNEPAMYL OPTI + [Concomitant]
     Indication: Product used for unknown indication
  6. BETAHISTINE ARROW [Concomitant]
     Indication: Product used for unknown indication
  7. DAFALGAN [Concomitant]
     Active Substance: ACETAMINOPHEN
     Indication: Product used for unknown indication
  8. CHOLECALCIFEROL [Concomitant]
     Active Substance: CHOLECALCIFEROL
     Indication: Product used for unknown indication
     Dosage: 25000 E
  9. PANTOMED [DEXPANTHENOL] [Concomitant]
     Indication: Product used for unknown indication

REACTIONS (20)
  - Mitral valve incompetence [Unknown]
  - Tricuspid valve incompetence [Unknown]
  - Hypotension [Recovered/Resolved]
  - Presyncope [Unknown]
  - Supraventricular extrasystoles [Unknown]
  - Diastolic dysfunction [Unknown]
  - Extrasystoles [Unknown]
  - Tachycardia [Unknown]
  - Weight increased [Unknown]
  - Hyperhidrosis [Unknown]
  - Nausea [Not Recovered/Not Resolved]
  - Malaise [Not Recovered/Not Resolved]
  - Agitation [Unknown]
  - Diarrhoea [Unknown]
  - Vertigo [Unknown]
  - Decreased appetite [Not Recovered/Not Resolved]
  - Restlessness [Unknown]
  - Feeling hot [Unknown]
  - Abdominal pain [Unknown]
  - Muscle spasms [Unknown]
